FAERS Safety Report 5340275-8 (Version None)
Quarter: 2007Q2

REPORT INFORMATION
  Report Type: 
  Country: None (occurrence: None)
  Receive Date: 20070405
  Receipt Date: 20070118
  Transmission Date: 20071010
  Serious: No
  Sender: FDA-Public Use
  Company Number: US200701003651

PATIENT
  Sex: Female

DRUGS (5)
  1. CYMBALTA [Suspect]
     Indication: INTESTINAL FUNCTIONAL DISORDER
     Dosage: SEE IMAGE
     Route: 048
     Dates: start: 20050101, end: 20060101
  2. CYMBALTA [Suspect]
     Indication: INTESTINAL FUNCTIONAL DISORDER
     Dosage: SEE IMAGE
     Route: 048
     Dates: start: 20060101
  3. SYNTHROID [Concomitant]
  4. PROPRANOLOL [Concomitant]
  5. PRAVACHOL [Concomitant]

REACTIONS (5)
  - ASTHENIA [None]
  - DRUG INEFFECTIVE [None]
  - FEELING ABNORMAL [None]
  - HYPERSOMNIA [None]
  - SLEEP WALKING [None]
